FAERS Safety Report 21160674 (Version 1)
Quarter: 2022Q3

REPORT INFORMATION
  Report Type: Report from Study
  Country: CA (occurrence: CA)
  Receive Date: 20220802
  Receipt Date: 20220802
  Transmission Date: 20221027
  Serious: Yes (Hospitalization)
  Sender: FDA-Public Use
  Company Number: None

PATIENT
  Age: 44 Year
  Sex: Female

DRUGS (7)
  1. QUETIAPINE FUMARATE [Suspect]
     Active Substance: QUETIAPINE FUMARATE
     Indication: Mental disorder
     Route: 065
  2. AMANTADINE [Suspect]
     Active Substance: AMANTADINE
     Indication: Product used for unknown indication
     Route: 065
  3. DIMETHYL FUMARATE [Suspect]
     Active Substance: DIMETHYL FUMARATE
     Indication: Multiple sclerosis
     Dosage: CAPSULE, DELAYED RELEASE,  2 EVERY 1 DAYS
     Route: 048
  4. METAMUCIL [Suspect]
     Active Substance: PLANTAGO SEED
     Indication: Constipation
     Route: 065
  5. RISPERDAL [Suspect]
     Active Substance: RISPERIDONE
     Indication: Mental disorder
     Route: 065
  6. DIMETHYL FUMARATE [Suspect]
     Active Substance: DIMETHYL FUMARATE
     Indication: Multiple sclerosis
     Dosage: PROLONGED-RELEASE CAPSULE,   2 EVERY 1 DAYS
     Route: 048
  7. DIMETHYL FUMARATE [Suspect]
     Active Substance: DIMETHYL FUMARATE
     Indication: Multiple sclerosis
     Dosage: 2 EVERY 1 DAYS
     Route: 065

REACTIONS (15)
  - Constipation [Not Recovered/Not Resolved]
  - Depression [Not Recovered/Not Resolved]
  - Diarrhoea [Not Recovered/Not Resolved]
  - Feeling abnormal [Not Recovered/Not Resolved]
  - Joint swelling [Not Recovered/Not Resolved]
  - Mania [Not Recovered/Not Resolved]
  - Multiple sclerosis relapse [Not Recovered/Not Resolved]
  - Pain [Not Recovered/Not Resolved]
  - Psychotic disorder [Not Recovered/Not Resolved]
  - Rash [Not Recovered/Not Resolved]
  - Suicidal ideation [Not Recovered/Not Resolved]
  - Trigeminal neuralgia [Not Recovered/Not Resolved]
  - Underdose [Unknown]
  - Vertigo [Not Recovered/Not Resolved]
  - Visual impairment [Not Recovered/Not Resolved]
